FAERS Safety Report 8006709-5 (Version None)
Quarter: 2011Q4

REPORT INFORMATION
  Report Type: 
  Country: None (occurrence: None)
  Receive Date: 20111227
  Receipt Date: 20111215
  Transmission Date: 20120403
  Serious: Yes (Other)
  Sender: FDA-Public Use
  Company Number: CA-BAYER-2011-105690

PATIENT
  Age: 30 Year
  Sex: Female
  Weight: 66.667 kg

DRUGS (1)
  1. MIRENA [Suspect]
     Indication: CONTRACEPTION
     Dosage: UNK
     Dates: start: 20091120, end: 20110327

REACTIONS (5)
  - PREGNANCY WITH CONTRACEPTIVE DEVICE [None]
  - UTERINE PERFORATION [None]
  - SUBCHORIONIC HAEMORRHAGE [None]
  - ABDOMINAL PAIN [None]
  - BRADYCARDIA FOETAL [None]
